FAERS Safety Report 20764778 (Version 2)
Quarter: 2022Q2

REPORT INFORMATION
  Report Type: Spontaneous
  Country: US (occurrence: US)
  Receive Date: 20220428
  Receipt Date: 20220615
  Transmission Date: 20220721
  Serious: Yes (Other)
  Sender: FDA-Public Use
  Company Number: US-PFIZER INC-202200463880

PATIENT
  Age: 89 Year
  Sex: Female
  Weight: 74 kg

DRUGS (1)
  1. IBRANCE [Suspect]
     Active Substance: PALBOCICLIB
     Indication: Breast neoplasm
     Dosage: 125 MG
     Dates: start: 20200724, end: 20220323

REACTIONS (2)
  - White blood cell count decreased [Unknown]
  - Laboratory test abnormal [Unknown]
